FAERS Safety Report 6601705-4 (Version None)
Quarter: 2010Q1

REPORT INFORMATION
  Report Type: 
  Country: None (occurrence: None)
  Receive Date: 20100225
  Receipt Date: 20100217
  Transmission Date: 20100710
  Serious: Yes (Other)
  Sender: FDA-Public Use
  Company Number: JP-ROCHE-687153

PATIENT
  Sex: Female

DRUGS (14)
  1. TOCILIZUMAB [Suspect]
     Indication: RHEUMATOID ARTHRITIS
     Route: 041
     Dates: start: 20090724, end: 20090724
  2. TOCILIZUMAB [Suspect]
     Route: 041
     Dates: start: 20090821, end: 20090821
  3. TOCILIZUMAB [Suspect]
     Route: 041
     Dates: start: 20090925, end: 20090925
  4. TOCILIZUMAB [Suspect]
     Route: 041
     Dates: start: 20091023, end: 20091023
  5. TOCILIZUMAB [Suspect]
     Route: 041
     Dates: start: 20100115, end: 20100115
  6. TOCILIZUMAB [Suspect]
     Route: 041
     Dates: start: 20100212
  7. METHOTREXATE [Concomitant]
     Route: 048
     Dates: start: 20090610, end: 20090712
  8. METHOTREXATE [Concomitant]
     Route: 048
     Dates: start: 20090713
  9. PREDONINE [Concomitant]
     Route: 048
  10. FOLIAMIN [Concomitant]
     Dosage: DOSE FORM: PERORAL AGENT
     Route: 048
  11. TAKEPRON [Concomitant]
     Route: 048
  12. ONEALFA [Concomitant]
     Route: 048
  13. HYPEN [Concomitant]
     Route: 048
  14. ASPARA-CA [Concomitant]
     Route: 048

REACTIONS (1)
  - SUBCUTANEOUS ABSCESS [None]
